FAERS Safety Report 16831367 (Version 6)
Quarter: 2021Q1

REPORT INFORMATION
  Report Type: Spontaneous
  Country: JP (occurrence: JP)
  Receive Date: 20190920
  Receipt Date: 20210322
  Transmission Date: 20210419
  Serious: Yes (Life-Threatening, Hospitalization, Other)
  Sender: FDA-Public Use
  Company Number: JP-ASTRAZENECA-2019SF32980

PATIENT
  Age: 45 Year
  Sex: Male
  Weight: 63 kg

DRUGS (9)
  1. IMFINZI [Suspect]
     Active Substance: DURVALUMAB
     Indication: NON-SMALL CELL LUNG CANCER
     Route: 041
     Dates: start: 20190423, end: 20190716
  2. SODIUM PICOSULFATE HYDRATE [Concomitant]
     Active Substance: SODIUM PICOSULFATE
     Indication: CONSTIPATION
     Dosage: 10.0ML UNKNOWN
     Route: 048
     Dates: start: 20190222
  3. VENETLIN [Concomitant]
     Active Substance: ALBUTEROL SULFATE
     Indication: PROPHYLAXIS
     Route: 055
     Dates: start: 20190419
  4. ROZEREM [Concomitant]
     Active Substance: RAMELTEON
     Indication: INSOMNIA
     Dosage: 80.0ML UNKNOWN
     Route: 048
     Dates: start: 20190702, end: 20190918
  5. HEPARIN SODIUM. [Concomitant]
     Active Substance: HEPARIN SODIUM
     Indication: PROPHYLAXIS
     Route: 065
     Dates: start: 20190320, end: 20190922
  6. DEXART [Suspect]
     Active Substance: DEXAMETHASONE SODIUM PHOSPHATE
     Route: 065
     Dates: start: 20190219
  7. AMLODIPINE [Concomitant]
     Active Substance: AMLODIPINE BESYLATE
     Indication: HYPERTENSION
     Route: 048
  8. LECICARBON [Concomitant]
     Active Substance: SODIUM BICARBONATE\SODIUM PHOSPHATE, MONOBASIC
     Indication: CONSTIPATION
     Dosage: 1.0DF UNKNOWN
     Route: 065
     Dates: start: 20190222
  9. AZULENE [Concomitant]
     Active Substance: AZULENE
     Indication: PROPHYLAXIS
     Route: 048
     Dates: start: 20190419

REACTIONS (10)
  - Epilepsy [Recovering/Resolving]
  - Radiation pneumonitis [Recovering/Resolving]
  - Cough [Not Recovered/Not Resolved]
  - Cell marker increased [Not Recovered/Not Resolved]
  - Alanine aminotransferase increased [Unknown]
  - Cough [Recovering/Resolving]
  - Metastases to central nervous system [Recovering/Resolving]
  - Brain oedema [Recovering/Resolving]
  - Malignant neoplasm progression [Unknown]
  - Insomnia [Not Recovered/Not Resolved]

NARRATIVE: CASE EVENT DATE: 20190521
